FAERS Safety Report 24036489 (Version 7)
Quarter: 2024Q3

REPORT INFORMATION
  Report Type: Report from Study
  Country: CA (occurrence: None)
  Receive Date: 20240701
  Receipt Date: 20240906
  Transmission Date: 20241017
  Serious: Yes (Other)
  Sender: ASTRAZENECA
  Company Number: 2024A149455

PATIENT
  Age: 15294 Day
  Sex: Female

DRUGS (1)
  1. SAPHNELO [Suspect]
     Active Substance: ANIFROLUMAB-FNIA
     Indication: Systemic lupus erythematosus
     Route: 042
     Dates: start: 20240626

REACTIONS (20)
  - Nausea [Not Recovered/Not Resolved]
  - Headache [Unknown]
  - Abnormal sensation in eye [Unknown]
  - Eye irritation [Unknown]
  - Body temperature increased [Unknown]
  - Infusion related reaction [Recovered/Resolved]
  - Chronic cutaneous lupus erythematosus [Unknown]
  - Abdominal pain upper [Not Recovered/Not Resolved]
  - Weight decreased [Unknown]
  - Constipation [Unknown]
  - Pyrexia [Not Recovered/Not Resolved]
  - Cough [Not Recovered/Not Resolved]
  - Pain [Not Recovered/Not Resolved]
  - Alopecia [Unknown]
  - Rash [Unknown]
  - Dizziness [Not Recovered/Not Resolved]
  - Inappropriate schedule of product administration [Unknown]
  - Vomiting [Unknown]
  - Illness [Unknown]
  - Systemic lupus erythematosus [Unknown]

NARRATIVE: CASE EVENT DATE: 20240626
